FAERS Safety Report 25982248 (Version 2)
Quarter: 2025Q4

REPORT INFORMATION
  Report Type: Spontaneous
  Country: BR (occurrence: BR)
  Receive Date: 20251031
  Receipt Date: 20251114
  Transmission Date: 20260117
  Serious: Yes (Other)
  Sender: HELSINN HEALTHCARE
  Company Number: BR-HBP-2025BR032524

PATIENT
  Age: 42 Year
  Sex: Female
  Weight: 69.2 kg

DRUGS (9)
  1. AKYNZEO (NETUPITANT\PALONOSETRON HYDROCHLORIDE) [Suspect]
     Active Substance: NETUPITANT\PALONOSETRON HYDROCHLORIDE
     Indication: Antiemetic supportive care
     Dosage: 1 CAPSULE, SINGLE ON DAY-6
     Route: 048
     Dates: start: 202508
  2. DECADRON (DEXAMETHASONE SODIUM PHOSPHATE) [Suspect]
     Active Substance: DEXAMETHASONE SODIUM PHOSPHATE
     Indication: Product used for unknown indication
     Dosage: 12 MILLIGRAM, QD ON DAY-6
     Route: 042
     Dates: start: 202508, end: 202508
  3. DECADRON (DEXAMETHASONE SODIUM PHOSPHATE) [Suspect]
     Active Substance: DEXAMETHASONE SODIUM PHOSPHATE
     Dosage: 8 MILLIGRAM, QD FROM DAY-5 TO DAY-1
     Route: 042
     Dates: start: 202508
  4. ACETAMINOPHEN [Suspect]
     Active Substance: ACETAMINOPHEN
     Indication: Product used for unknown indication
     Dosage: UNK, QD
     Route: 048
     Dates: start: 202508
  5. DIPHENHYDRAMINE [Suspect]
     Active Substance: DIPHENHYDRAMINE
     Indication: Product used for unknown indication
     Dosage: 50 MILLIGRAM, SINGLE ON DAY-6
     Route: 042
     Dates: start: 202508
  6. ONDANSETRON HYDROCHLORIDE [Suspect]
     Active Substance: ONDANSETRON HYDROCHLORIDE
     Indication: Product used for unknown indication
     Dosage: 16 MILLIGRAM, QD ON DAY-6
     Route: 042
     Dates: start: 202508
  7. CARMUSTINE [Suspect]
     Active Substance: CARMUSTINE
     Indication: Product used for unknown indication
     Dosage: CALCULATED DOSE 500 MILLIGRAM (300 MG/ SQUARE METER), QD ON DAY-6
     Route: 042
     Dates: start: 202508
  8. ETOPOSIDE [Suspect]
     Active Substance: ETOPOSIDE
     Indication: Product used for unknown indication
     Dosage: CALCULATED DOSE 170.9 MG (100 MG/SQUARE METER), QD FROM DAY-5 TO DAY-2
     Route: 042
     Dates: start: 202508
  9. ETOPOSIDE [Suspect]
     Active Substance: ETOPOSIDE
     Indication: Product used for unknown indication
     Dosage: CALCULATED DOSE OF 170.9 MG (100 MG/ SQUARE METER), QD FROM DAY-5 TO DAY-2
     Route: 042
     Dates: start: 202508

REACTIONS (3)
  - Febrile neutropenia [Recovered/Resolved]
  - Vomiting [Recovered/Resolved]
  - Symptom recurrence [Recovered/Resolved]

NARRATIVE: CASE EVENT DATE: 20250101
